FAERS Safety Report 5918355-5 (Version None)
Quarter: 2008Q4

REPORT INFORMATION
  Report Type: 
  Country: None (occurrence: None)
  Receive Date: 20081010
  Receipt Date: 20081004
  Transmission Date: 20090506
  Serious: Yes (Other)
  Sender: FDA-Public Use
  Company Number: 2008SP020312

PATIENT
  Age: 43 Year
  Sex: Female

DRUGS (2)
  1. PEG-INTRON [Suspect]
     Indication: HEPATITIS C
     Dosage: ; SC
     Route: 058
     Dates: start: 20080805
  2. RIBAVIRIN [Suspect]
     Indication: HEPATITIS C
     Dosage: ; PO
     Route: 048
     Dates: start: 20080805

REACTIONS (8)
  - DEHYDRATION [None]
  - DISTURBANCE IN ATTENTION [None]
  - DYSPNOEA EXERTIONAL [None]
  - EAR PAIN [None]
  - MEMORY IMPAIRMENT [None]
  - MENORRHAGIA [None]
  - PRODUCTIVE COUGH [None]
  - VOMITING [None]
